FAERS Safety Report 8521416-8 (Version None)
Quarter: 2012Q3

REPORT INFORMATION
  Report Type: 
  Country: None (occurrence: None)
  Receive Date: 20120719
  Receipt Date: 20120713
  Transmission Date: 20120928
  Serious: No
  Sender: FDA-Public Use
  Company Number: US-PFIZER INC-2012169745

PATIENT
  Sex: Female
  Weight: 72.562 kg

DRUGS (6)
  1. ALSUMA [Suspect]
     Indication: MIGRAINE
     Dosage: 06/0.5MG/ML, UNK
     Dates: start: 20120712
  2. TIZANIDINE HYDROCHLORIDE [Concomitant]
     Indication: FIBROMYALGIA
     Dosage: 01MG THREE IN THE DAY AND TWO IN THE NIGHT
  3. VALIUM [Concomitant]
     Indication: FIBROMYALGIA
     Dosage: 10 MG, EVERY EIGHT HOUR AS NEEDED
  4. OXYCODONE [Concomitant]
     Indication: INTERVERTEBRAL DISC PROTRUSION
     Dosage: 50 MG, EVERY EIGHT HOUR AS NEEDED
  5. BACLOFEN [Concomitant]
     Indication: FIBROMYALGIA
     Dosage: 10MG ONE AND A HALF PILL, 3X/DAY
  6. FENTANYL [Concomitant]
     Indication: INTERVERTEBRAL DISC PROTRUSION
     Dosage: 100 UG, EVERY THREE DAYS
     Route: 062

REACTIONS (1)
  - BLOOD PRESSURE INCREASED [None]
